FAERS Safety Report 6444670-5 (Version None)
Quarter: 2009Q4

REPORT INFORMATION
  Report Type: 
  Country: None (occurrence: None)
  Receive Date: 20091118
  Receipt Date: 20091108
  Transmission Date: 20100525
  Serious: Yes (Hospitalization, Other)
  Sender: FDA-Public Use
  Company Number: US-AMGEN-QUU373473

PATIENT
  Sex: Male

DRUGS (2)
  1. ENBREL [Suspect]
     Indication: PSORIASIS
  2. METHOTREXATE [Concomitant]

REACTIONS (8)
  - BLOOD POTASSIUM DECREASED [None]
  - BLOOD SODIUM DECREASED [None]
  - CROHN'S DISEASE [None]
  - DEHYDRATION [None]
  - FATIGUE [None]
  - RED BLOOD CELL COUNT DECREASED [None]
  - VITAMIN B12 DECREASED [None]
  - WHITE BLOOD CELL COUNT DECREASED [None]
